FAERS Safety Report 8808394 (Version 3)
Quarter: 2018Q4

REPORT INFORMATION
  Report Type: Spontaneous
  Country: US (occurrence: US)
  Receive Date: 20120926
  Receipt Date: 20181120
  Transmission Date: 20190205
  Serious: Yes (Other)
  Sender: FDA-Public Use
  Company Number: US-PFIZER INC-2012235009

PATIENT
  Age: 67 Year
  Sex: Female
  Weight: 68.2 kg

DRUGS (1)
  1. LIPITOR [Suspect]
     Active Substance: ATORVASTATIN CALCIUM
     Indication: BLOOD CHOLESTEROL INCREASED
     Dosage: 40 MG, 1X/DAY
     Route: 048
     Dates: start: 2012, end: 201209

REACTIONS (4)
  - Blood cholesterol increased [Unknown]
  - Dysphagia [Unknown]
  - Blood glucose decreased [Unknown]
  - Product size issue [Unknown]

NARRATIVE: CASE EVENT DATE: 20120918
